FAERS Safety Report 7953978-3 (Version None)
Quarter: 2011Q4

REPORT INFORMATION
  Report Type: 
  Country: None (occurrence: None)
  Receive Date: 20111202
  Receipt Date: 20111202
  Transmission Date: 20120403
  Serious: Yes (Death, Life-Threatening, Hospitalization, Disabling, Congenital Anomaly, Other)
  Sender: FDA-Public Use
  Company Number: None

PATIENT
  Age: 76 Year
  Sex: Female
  Weight: 52.163 kg

DRUGS (1)
  1. VIGAMOX [Suspect]
     Indication: CATARACT OPERATION
     Dosage: 1 DROP
     Route: 021
     Dates: start: 20111115, end: 20111119

REACTIONS (3)
  - RASH ERYTHEMATOUS [None]
  - PRODUCT SUBSTITUTION ISSUE [None]
  - URTICARIA [None]
